FAERS Safety Report 7223202-8 (Version None)
Quarter: 2011Q1

REPORT INFORMATION
  Report Type: 
  Country: None (occurrence: None)
  Receive Date: 20110112
  Receipt Date: 20100304
  Transmission Date: 20110831
  Serious: No
  Sender: FDA-Public Use
  Company Number: US-ALLERGAN-1002874US

PATIENT
  Age: 70 Year
  Sex: Female

DRUGS (10)
  1. DIOVAN [Concomitant]
     Indication: HYPERTENSION
     Dosage: 320 MG, QD
  2. PRILOSEC [Concomitant]
     Indication: GASTROOESOPHAGEAL REFLUX DISEASE
     Dosage: 20 MG, QD
  3. METOPROLOL [Concomitant]
     Indication: HYPERTENSION
     Dosage: 25 MG, QD
  4. MICRO-K [Concomitant]
     Indication: PRODUCT USED FOR UNKNOWN INDICATION
     Dosage: 10 MG, QD
  5. HYDROCHLOROTHIAZIDE [Concomitant]
     Indication: HYPERTENSION
     Dosage: 12.5 MG, QD
  6. ASPIRIN [Concomitant]
     Indication: HYPERTENSION
     Dosage: 81 MG, QD
  7. LEVOTHYROXINE [Concomitant]
     Indication: HYPERTHYROIDISM
  8. RESTASIS [Suspect]
     Indication: DRY EYE
     Dosage: UNK
     Dates: start: 20100301
  9. SIMVASTATIN [Concomitant]
     Indication: HYPERCHOLESTEROLAEMIA
  10. RELAFEN [Suspect]
     Indication: ARTHRITIS

REACTIONS (1)
  - BLOOD PRESSURE INCREASED [None]
